FAERS Safety Report 15102853 (Version 3)
Quarter: 2019Q2

REPORT INFORMATION
  Report Type: Spontaneous
  Country: US (occurrence: US)
  Receive Date: 20180703
  Receipt Date: 20190517
  Transmission Date: 20190711
  Serious: No
  Sender: FDA-Public Use
  Company Number: US-SA-2018SA170959

PATIENT
  Age: 25 Year
  Sex: Male

DRUGS (1)
  1. DUPIXENT [Suspect]
     Active Substance: DUPILUMAB
     Indication: DERMATITIS ATOPIC
     Dosage: 300 MG, QOW
     Route: 058
     Dates: start: 20180330, end: 201904

REACTIONS (7)
  - Eyelids pruritus [Unknown]
  - Cough [Not Recovered/Not Resolved]
  - Eyelid irritation [Recovering/Resolving]
  - Eyelid margin crusting [Unknown]
  - Rash [Not Recovered/Not Resolved]
  - Eye discharge [Unknown]
  - Dry skin [Not Recovered/Not Resolved]

NARRATIVE: CASE EVENT DATE: 2018
